FAERS Safety Report 6239609-1 (Version None)
Quarter: 2009Q2

REPORT INFORMATION
  Report Type: 
  Country: None (occurrence: None)
  Receive Date: 20090622
  Receipt Date: 20090618
  Transmission Date: 20091009
  Serious: Yes (Other)
  Sender: FDA-Public Use
  Company Number: US-AMGEN-US351165

PATIENT
  Sex: Male
  Weight: 89 kg

DRUGS (3)
  1. NPLATE [Suspect]
     Indication: IDIOPATHIC THROMBOCYTOPENIC PURPURA
     Route: 058
     Dates: start: 20090504, end: 20090511
  2. CORTICOSTEROIDS [Concomitant]
  3. GLYBURIDE [Concomitant]
     Route: 048
     Dates: start: 20061031

REACTIONS (1)
  - RASH GENERALISED [None]
